FAERS Safety Report 26058887 (Version 1)
Quarter: 2025Q4

REPORT INFORMATION
  Report Type: Spontaneous
  Country: EU (occurrence: EU)
  Receive Date: 20251118
  Receipt Date: 20251118
  Transmission Date: 20260118
  Serious: Yes (Death, Life-Threatening, Hospitalization)
  Sender: AMGEN
  Company Number: EU-AMGEN-NLDSP2025224778

PATIENT

DRUGS (2)
  1. ADALIMUMAB [Suspect]
     Active Substance: ADALIMUMAB
     Indication: Rheumatoid arthritis
     Dosage: UNK
     Route: 065
  2. ETANERCEPT [Suspect]
     Active Substance: ETANERCEPT
     Indication: Rheumatoid arthritis
     Dosage: UNK
     Route: 065

REACTIONS (7)
  - Adverse event [Fatal]
  - Ill-defined disorder [Unknown]
  - White blood cell disorder [Unknown]
  - Platelet count abnormal [Unknown]
  - Glomerular filtration rate abnormal [Unknown]
  - Haemoglobin abnormal [Unknown]
  - Alanine aminotransferase abnormal [Unknown]
